FAERS Safety Report 8971619 (Version 1)
Quarter: 2012Q4

REPORT INFORMATION
  Report Type: Report from Study
  Country: FR (occurrence: FR)
  Receive Date: 20121217
  Receipt Date: 20121217
  Transmission Date: 20130627
  Serious: Yes (Death, Disabling)
  Sender: FDA-Public Use
  Company Number: FR-ROCHE-1169412

PATIENT
  Age: 79 Year
  Sex: Female

DRUGS (8)
  1. RITUXIMAB [Suspect]
     Indication: CHRONIC LYMPHOCYTIC LEUKAEMIA
     Route: 041
     Dates: start: 20110830, end: 20111128
  2. RITUXIMAB [Suspect]
     Route: 041
     Dates: start: 20111128, end: 20111128
  3. ENDOXAN [Suspect]
     Indication: CHRONIC LYMPHOCYTIC LEUKAEMIA
     Route: 002
     Dates: start: 20110830, end: 20111130
  4. ENDOXAN [Suspect]
     Route: 002
     Dates: start: 20111128, end: 20111130
  5. FLUDARA [Suspect]
     Indication: CHRONIC LYMPHOCYTIC LEUKAEMIA
     Route: 002
     Dates: start: 20110830, end: 20111130
  6. FLUDARA [Suspect]
     Route: 002
     Dates: start: 20111128, end: 20111130
  7. LEVOTHYROX [Concomitant]
     Route: 065
  8. GAVISCON (ALGINIC ACID) [Concomitant]

REACTIONS (2)
  - Encephalitis viral [Fatal]
  - Lung disorder [Fatal]
